FAERS Safety Report 24352068 (Version 2)
Quarter: 2024Q4

REPORT INFORMATION
  Report Type: Report from Study
  Country: US (occurrence: US)
  Receive Date: 20240923
  Receipt Date: 20241028
  Transmission Date: 20250115
  Serious: Yes (Hospitalization)
  Sender: GILEAD
  Company Number: US-GILEAD-2024-0688497

PATIENT
  Age: 1 Year
  Sex: Female
  Weight: 10.8 kg

DRUGS (9)
  1. AMBRISENTAN [Suspect]
     Active Substance: AMBRISENTAN
     Indication: Pulmonary hypertension
     Dosage: 5 MG, QD
     Route: 065
     Dates: start: 20240216
  2. AMBRISENTAN [Suspect]
     Active Substance: AMBRISENTAN
     Indication: Pulmonary arterial hypertension
     Dosage: 2.5 MG, QD, [ROUTE: J-TUBE]
     Route: 065
     Dates: start: 20240216
  3. TRAMADOL HYDROCHLORIDE [Concomitant]
     Active Substance: TRAMADOL HYDROCHLORIDE
     Indication: Pulmonary arterial hypertension
     Dosage: 9.2 MG, QD (ROUTE: J-TUBE)
     Route: 065
     Dates: start: 20230712
  4. REMODULIN [Concomitant]
     Active Substance: TREPROSTINIL
     Indication: Pulmonary arterial hypertension
     Dosage: 45.3 MG
     Route: 058
     Dates: start: 20240303
  5. OMEPRAZOLE [Concomitant]
     Active Substance: OMEPRAZOLE
     Indication: Gastrointestinal motility disorder
     Dosage: 10.8 MG, QD (ROUTE: J-TUBE)
     Route: 065
  6. PEPCID [Concomitant]
     Active Substance: FAMOTIDINE
     Indication: Gastrointestinal motility disorder
     Dosage: 4 MG, BID (ROUTE: J-TUBE)
     Route: 065
  7. LASIX [Concomitant]
     Active Substance: FUROSEMIDE
     Indication: Pulmonary arterial hypertension
     Dosage: 8 MG, BID (ROUTE: J-TUBE)
     Route: 065
  8. DIURIL [CHLOROTHIAZIDE SODIUM] [Concomitant]
     Indication: Pulmonary arterial hypertension
     Dosage: 40 MG, BID (ROUTE: J-TUBE)
     Route: 065
  9. ERYTHROMYCIN [Concomitant]
     Active Substance: ERYTHROMYCIN
     Indication: Vomiting
     Dosage: 5 MG/KG (ROUTE: J-TUBE)
     Route: 065

REACTIONS (7)
  - Surgery [Recovered/Resolved]
  - Delayed recovery from anaesthesia [Recovered/Resolved]
  - Viral infection [Recovered/Resolved]
  - Oxygen saturation decreased [Unknown]
  - Serratia test positive [Unknown]
  - Stenotrophomonas test positive [Unknown]
  - Off label use [Not Recovered/Not Resolved]

NARRATIVE: CASE EVENT DATE: 20240216
